FAERS Safety Report 5013453-5 (Version None)
Quarter: 2006Q2

REPORT INFORMATION
  Report Type: 
  Country: None (occurrence: None)
  Receive Date: 20060530
  Receipt Date: 20060324
  Transmission Date: 20061013
  Serious: Yes (Hospitalization)
  Sender: FDA-Public Use
  Company Number: 2006UW05266

PATIENT
  Age: 55 Year
  Sex: Female
  Weight: 57.3 kg

DRUGS (2)
  1. ARIMIDEX [Suspect]
     Indication: BREAST CANCER
     Route: 048
     Dates: start: 20060115
  2. HERCEPTIN [Concomitant]
     Indication: BREAST CANCER
     Dosage: Q 21 DAYS
     Route: 042
     Dates: start: 20051115

REACTIONS (3)
  - CARDIOTOXICITY [None]
  - FATIGUE [None]
  - JOINT SWELLING [None]
